FAERS Safety Report 22945259 (Version 5)
Quarter: 2025Q4

REPORT INFORMATION
  Report Type: Spontaneous
  Country: GB (occurrence: GB)
  Receive Date: 20230914
  Receipt Date: 20251129
  Transmission Date: 20260117
  Serious: Yes (Other)
  Sender: SANDOZ
  Company Number: GB-Bristol Laboratories Ltd-BLL202307-000085

PATIENT
  Age: 62 Year
  Sex: Female
  Weight: 75 kg

DRUGS (14)
  1. AMLODIPINE [Suspect]
     Active Substance: AMLODIPINE BESYLATE
     Indication: Blood pressure increased
     Dosage: 5 MG (5 MILLIGRAM )
     Route: 048
     Dates: start: 20191129
  2. AMLODIPINE [Suspect]
     Active Substance: AMLODIPINE BESYLATE
     Indication: Hypertension
  3. BISOPROLOL FUMARATE [Suspect]
     Active Substance: BISOPROLOL FUMARATE
     Indication: Blood pressure increased
     Dosage: UNK
     Route: 065
  4. COVID-19 VACCINE NOS [Suspect]
     Active Substance: COVID-19 VACCINE
     Dosage: UNK (FIRST VACCINE)
     Route: 065
  5. COVID-19 VACCINE NOS [Suspect]
     Active Substance: COVID-19 VACCINE
     Indication: COVID-19 immunisation
     Dosage: MY FIRST VACCINE
     Route: 065
  6. METOPROLOL [Suspect]
     Active Substance: METOPROLOL
     Indication: Blood pressure increased
     Dosage: 50 MG IN MORNING AND 25MG IN EVENING , Q12H
     Route: 065
  7. RAMIPRIL [Suspect]
     Active Substance: RAMIPRIL
     Indication: Blood pressure increased
     Dosage: 2.5 MG, (PC 05060149318850, SN 407599939063 PC 05060013940934, SN 526Z4MMSYAFM77), (CAPSULE)
     Route: 065
     Dates: start: 2019
  8. RAMIPRIL [Suspect]
     Active Substance: RAMIPRIL
     Indication: Hypertension
     Dosage: 2.5 MG, (PC 05060149318850, SN 407599939063 PC 05060013940934, SN 526Z4MMSYAFM77), (CAPSULE)
     Route: 065
     Dates: start: 20200215
  9. RAMIPRIL [Suspect]
     Active Substance: RAMIPRIL
     Dosage: 1.25 MG
     Route: 065
  10. RAMIPRIL [Suspect]
     Active Substance: RAMIPRIL
     Indication: Heart rate irregular
     Dosage: 2.5 MG
     Route: 048
     Dates: start: 2019
  11. BISOPROLOL [Concomitant]
     Active Substance: BISOPROLOL
     Dosage: 50 MG, QD
     Route: 065
  12. BISOPROLOL [Concomitant]
     Active Substance: BISOPROLOL
     Indication: Product used for unknown indication
     Dosage: UNK
     Route: 065
  13. INFLUENZA VIRUS VACCINE [Concomitant]
     Active Substance: INFLUENZA VIRUS VACCINE
     Indication: Immunisation
     Dosage: UNK
     Route: 065
  14. METOPROLOL [Concomitant]
     Active Substance: METOPROLOL
     Indication: Product used for unknown indication
     Dosage: 75 MG, BID (50 MG, IN MORNING, 25 MG , IN EVENING)
     Route: 065

REACTIONS (12)
  - Cardiac flutter [Unknown]
  - Heart rate irregular [Unknown]
  - Tachycardia [Not Recovered/Not Resolved]
  - Hypotension [Not Recovered/Not Resolved]
  - Dyspnoea [Unknown]
  - Feeling abnormal [Unknown]
  - Heart rate increased [Unknown]
  - Cardiac disorder [Unknown]
  - Malaise [Unknown]
  - Product prescribing error [Unknown]
  - Product dose omission issue [Unknown]
  - Drug delivery system issue [Unknown]
